FAERS Safety Report 22066280 (Version 1)
Quarter: 2023Q1

REPORT INFORMATION
  Report Type: Spontaneous
  Country: AT (occurrence: AT)
  Receive Date: 20230306
  Receipt Date: 20230306
  Transmission Date: 20230418
  Serious: Yes (Hospitalization)
  Sender: FDA-Public Use
  Company Number: None

PATIENT
  Age: 53 Year
  Sex: Female
  Weight: 63.5 kg

DRUGS (3)
  1. EVISTA [Suspect]
     Active Substance: RALOXIFENE HYDROCHLORIDE
     Indication: Osteoporosis
     Route: 065
     Dates: start: 20220323, end: 20221227
  2. CALCIUM D3 STADA [Concomitant]
     Indication: Osteoporosis
     Route: 065
     Dates: start: 2020
  3. VITAMINS [Concomitant]
     Active Substance: VITAMINS
     Indication: Osteoporosis
     Dosage: 1 DOSAGE FORM, DAILY
     Route: 065
     Dates: start: 2020

REACTIONS (1)
  - Endometrial neoplasm [Recovered/Resolved]

NARRATIVE: CASE EVENT DATE: 20220801
